FAERS Safety Report 8964786 (Version 2)
Quarter: 2013Q1

REPORT INFORMATION
  Report Type: Spontaneous
  Country: US (occurrence: US)
  Receive Date: 20121214
  Receipt Date: 20130208
  Transmission Date: 20140127
  Serious: Yes (Other)
  Sender: FDA-Public Use
  Company Number: US-DX529-2012DX000264

PATIENT
  Age: 22 Year
  Sex: Male
  Weight: 95.26 kg

DRUGS (2)
  1. KALBITOR [Suspect]
     Indication: HEREDITARY ANGIOEDEMA
     Route: 058
     Dates: start: 20121130, end: 20121130
  2. DANAZOL [Concomitant]
     Indication: HEREDITARY ANGIOEDEMA
     Route: 048

REACTIONS (1)
  - Anaphylactic reaction [Unknown]
